FAERS Safety Report 15700408 (Version 1)
Quarter: 2018Q4

REPORT INFORMATION
  Report Type: Spontaneous
  Country: CN (occurrence: CN)
  Receive Date: 20181207
  Receipt Date: 20181207
  Transmission Date: 20190205
  Serious: Yes (Other)
  Sender: FDA-Public Use
  Company Number: PHHY2018CN177004

PATIENT
  Age: 46 Year
  Sex: Female

DRUGS (1)
  1. ACLASTA [Suspect]
     Active Substance: ZOLEDRONIC ACID
     Indication: CALCIUM DEFICIENCY
     Dosage: UNK
     Route: 065
     Dates: start: 20170912

REACTIONS (12)
  - Liver injury [Unknown]
  - Oedema peripheral [Unknown]
  - Dental caries [Unknown]
  - Face oedema [Unknown]
  - Bone density decreased [Unknown]
  - Eye haemorrhage [Unknown]
  - Ill-defined disorder [Unknown]
  - Product use in unapproved indication [Unknown]
  - Renal injury [Unknown]
  - Joint dislocation [Unknown]
  - Insomnia [Unknown]
  - Loose tooth [Unknown]

NARRATIVE: CASE EVENT DATE: 20170912
